FAERS Safety Report 5050735-5 (Version None)
Quarter: 2006Q3

REPORT INFORMATION
  Report Type: 
  Country: None (occurrence: None)
  Receive Date: 20060713
  Receipt Date: 20060525
  Transmission Date: 20061208
  Serious: Yes (Death, Other)
  Sender: FDA-Public Use
  Company Number: CZ-BRISTOL-MYERS SQUIBB COMPANY-13392006

PATIENT
  Sex: Male

DRUGS (1)
  1. MEGACE [Suspect]
     Indication: CACHEXIA
     Route: 048
     Dates: start: 20040107

REACTIONS (2)
  - DEATH [None]
  - OEDEMA [None]
